FAERS Safety Report 8622518-8 (Version None)
Quarter: 2012Q3

REPORT INFORMATION
  Report Type: 
  Country: None (occurrence: None)
  Receive Date: 20120827
  Receipt Date: 20120820
  Transmission Date: 20120928
  Serious: No
  Sender: FDA-Public Use
  Company Number: US-PFIZER INC-2012192222

PATIENT
  Age: 51 Year
  Sex: Female
  Weight: 66.667 kg

DRUGS (4)
  1. PREMPRO [Suspect]
     Indication: HOT FLUSH
     Dosage: 1 DF, 1X/DAY (0.45/1.5 MG )
     Route: 048
     Dates: start: 20120730, end: 20120806
  2. MECLIZINE [Concomitant]
     Indication: DIZZINESS
     Dosage: 25 MG, UPTO 3X/DAY AS NEEDED
  3. PREMPRO [Suspect]
     Indication: POSTMENOPAUSE
  4. DOXYCYCLINE HYDROCHLORIDE [Concomitant]
     Dosage: 100 MG, 2X/DAY
     Route: 048

REACTIONS (2)
  - PAIN IN EXTREMITY [None]
  - MUSCLE SPASMS [None]
